FAERS Safety Report 11573049 (Version 1)
Quarter: 2015Q3

REPORT INFORMATION
  Report Type: Spontaneous
  Country: US (occurrence: US)
  Receive Date: 20150916
  Receipt Date: 20150916
  Transmission Date: 20151125
  Serious: No
  Sender: FDA-Public Use
  Company Number: US-ELI_LILLY_AND_COMPANY-US200910006450

PATIENT
  Age: 71 Year
  Sex: Male

DRUGS (1)
  1. FORTEO [Suspect]
     Active Substance: TERIPARATIDE
     Indication: OSTEOPOROSIS
     Dosage: 20 UG, DAILY (1/D)
     Dates: start: 20091022

REACTIONS (8)
  - Muscle tightness [Unknown]
  - Musculoskeletal stiffness [Unknown]
  - Movement disorder [Unknown]
  - Blood pressure decreased [Unknown]
  - Muscle disorder [Unknown]
  - Heart rate increased [Unknown]
  - Blood calcium increased [Not Recovered/Not Resolved]
  - Vitamin D increased [Not Recovered/Not Resolved]

NARRATIVE: CASE EVENT DATE: 200910
